FAERS Safety Report 26011357 (Version 1)
Quarter: 2025Q4

REPORT INFORMATION
  Report Type: Spontaneous
  Country: US (occurrence: US)
  Receive Date: 20251107
  Receipt Date: 20251107
  Transmission Date: 20260117
  Serious: No
  Sender: DAIICHI
  Company Number: US-DSJP-DS-2025-172824-US

PATIENT
  Sex: Female

DRUGS (2)
  1. DATROWAY [Suspect]
     Active Substance: DATOPOTAMAB DERUXTECAN-DLNK
     Indication: Product used for unknown indication
     Dosage: UNK
     Route: 065
  2. DATROWAY [Suspect]
     Active Substance: DATOPOTAMAB DERUXTECAN-DLNK
     Dosage: UNK (DOSE REDUCED)
     Route: 065

REACTIONS (7)
  - Fatigue [Unknown]
  - Dry eye [Unknown]
  - Rhinorrhoea [Unknown]
  - Dry skin [Unknown]
  - Oral pain [Unknown]
  - Glossodynia [Unknown]
  - Ageusia [Unknown]

NARRATIVE: CASE EVENT DATE: 20251020
